FAERS Safety Report 18506129 (Version 1)
Quarter: 2020Q4

REPORT INFORMATION
  Report Type: Spontaneous
  Country: FR (occurrence: FR)
  Receive Date: 20201116
  Receipt Date: 20201116
  Transmission Date: 20210114
  Serious: Yes (Other)
  Sender: FDA-Public Use
  Company Number: FR-AMGEN-FRASP2020183090

PATIENT
  Age: 73 Year

DRUGS (2)
  1. BLINATUMOMAB [Suspect]
     Active Substance: BLINATUMOMAB
     Indication: B PRECURSOR TYPE ACUTE LEUKAEMIA
     Dosage: UNK
     Route: 065
  2. PONATINIB [Concomitant]
     Active Substance: PONATINIB
     Indication: B PRECURSOR TYPE ACUTE LEUKAEMIA
     Dosage: 45 MILLIGRAM, QD

REACTIONS (2)
  - Nervous system disorder [Unknown]
  - B precursor type acute leukaemia [Unknown]
